FAERS Safety Report 8788113 (Version 1)
Quarter: 2012Q4

REPORT INFORMATION
  Report Type: 
  Country: FR (occurrence: FR)
  Receive Date: 20120914
  Receipt Date: 20120914
  Transmission Date: 20130627
  Serious: Yes (Life-Threatening, Hospitalization)
  Sender: FDA-Public Use
  Company Number: PHHY2012FR079165

PATIENT
  Sex: Female

DRUGS (4)
  1. RASILEZ [Suspect]
     Indication: HYPERTENSION
     Dosage: 1 DF, daily
     Route: 048
     Dates: end: 20120624
  2. PROPANOLOL [Concomitant]
     Dosage: 2 DF, daily
  3. PLAVIX [Concomitant]
     Dosage: 1 DF, daily
  4. PRAXILENE [Concomitant]
     Dosage: 2 DF, daily

REACTIONS (8)
  - Hyponatraemia [Recovered/Resolved]
  - Convulsion [Recovered/Resolved]
  - Lung disorder [Unknown]
  - Urinary tract infection [Unknown]
  - Fluid retention [Unknown]
  - C-reactive protein increased [Unknown]
  - Leukocytosis [Unknown]
  - Neutrophil count increased [Unknown]
